FAERS Safety Report 9448469 (Version 1)
Quarter: 2013Q3

REPORT INFORMATION
  Report Type: Spontaneous
  Country: US (occurrence: US)
  Receive Date: 20130808
  Receipt Date: 20130808
  Transmission Date: 20140515
  Serious: No
  Sender: FDA-Public Use
  Company Number: US-TARO-2013P1002593

PATIENT
  Sex: Male

DRUGS (4)
  1. KETOCONAZOLE [Suspect]
  2. EXELON [Suspect]
  3. XANAX [Suspect]
  4. CLOTRIMAZOLE TOPICAL CREAM USP 1% [Concomitant]

REACTIONS (1)
  - Drug interaction [Recovered/Resolved]
